FAERS Safety Report 13590042 (Version 2)
Quarter: 2017Q2

REPORT INFORMATION
  Report Type: Report from Study
  Country: BR (occurrence: BR)
  Receive Date: 20170530
  Receipt Date: 20170531
  Transmission Date: 20170830
  Serious: Yes (Death)
  Sender: FDA-Public Use
  Company Number: ALCN2017BR003560

PATIENT
  Sex: Female
  Weight: 70 kg

DRUGS (1)
  1. DUOTRAV BAC-FREE [Suspect]
     Active Substance: TIMOLOL\TRAVOPROST
     Indication: GLAUCOMA
     Dosage: 1 GTT, QD
     Route: 047

REACTIONS (7)
  - Cardiac arrest [Fatal]
  - Gait disturbance [Unknown]
  - Cardiac failure [Fatal]
  - Asthenia [Fatal]
  - Peripheral swelling [Fatal]
  - Circulatory collapse [Fatal]
  - Oxygen consumption decreased [Fatal]
